FAERS Safety Report 4522485-2 (Version None)
Quarter: 2004Q4

REPORT INFORMATION
  Report Type: 
  Country: None (occurrence: None)
  Receive Date: 20041207
  Receipt Date: 20041122
  Transmission Date: 20050328
  Serious: Yes (Other)
  Sender: FDA-Public Use
  Company Number: US_0411107926

PATIENT
  Age: 52 Year
  Sex: Female
  Weight: 52 kg

DRUGS (3)
  1. FORTEO [Suspect]
     Indication: OSTEOPOROSIS
     Dosage: 20 UG DAY
     Dates: start: 20031114, end: 20041029
  2. LIPITOR [Concomitant]
  3. CITRACAL + D [Concomitant]

REACTIONS (12)
  - AMMONIA INCREASED [None]
  - ANGIOMYOLIPOMA [None]
  - BENIGN RENAL NEOPLASM [None]
  - DYSURIA [None]
  - HAEMANGIOMA OF LIVER [None]
  - HAEMATURIA [None]
  - HEPATIC CYST [None]
  - HEPATIC MASS [None]
  - NEPHROLITHIASIS [None]
  - POLLAKIURIA [None]
  - RENAL CYST [None]
  - URINE URIC ACID INCREASED [None]
